FAERS Safety Report 23110348 (Version 1)
Quarter: 2023Q4

REPORT INFORMATION
  Report Type: Spontaneous
  Country: US (occurrence: None)
  Receive Date: 20231024
  Receipt Date: 20231024
  Transmission Date: 20240110
  Serious: Yes (Death)
  Sender: FDA-Public Use
  Company Number: None

PATIENT
  Age: 84 Year
  Sex: Male

DRUGS (5)
  1. REPATHA [Suspect]
     Active Substance: EVOLOCUMAB
     Dosage: FREQUENCY : EVERY OTHER WEEK;?
     Route: 058
  2. LYUMJEV [Concomitant]
     Active Substance: INSULIN LISPRO-AABC
  3. INSULIN NOS [Concomitant]
     Active Substance: INSULIN NOS
  4. TRAMADOL [Concomitant]
     Active Substance: TRAMADOL\TRAMADOL HYDROCHLORIDE
  5. TROSPIUM [Concomitant]
     Active Substance: TROSPIUM

REACTIONS (1)
  - Death [None]

NARRATIVE: CASE EVENT DATE: 20231023
